FAERS Safety Report 22373597 (Version 1)
Quarter: 2023Q2

REPORT INFORMATION
  Report Type: Spontaneous
  Country: SI (occurrence: None)
  Receive Date: 20230526
  Receipt Date: 20230526
  Transmission Date: 20230722
  Serious: Yes (Hospitalization, Other)
  Sender: FDA-Public Use
  Company Number: 2023A119847

PATIENT
  Age: 72 Year
  Sex: Female

DRUGS (1)
  1. DAPAGLIFLOZIN [Suspect]
     Active Substance: DAPAGLIFLOZIN
     Indication: Type 2 diabetes mellitus
     Route: 048

REACTIONS (5)
  - Euglycaemic diabetic ketoacidosis [Unknown]
  - Hip fracture [Unknown]
  - Illness [Unknown]
  - Hypophagia [Unknown]
  - Fluid intake reduced [Unknown]
